FAERS Safety Report 14495411 (Version 1)
Quarter: 2018Q1

REPORT INFORMATION
  Report Type: Spontaneous
  Country: US (occurrence: US)
  Receive Date: 20180206
  Receipt Date: 20180206
  Transmission Date: 20180509
  Serious: No
  Sender: FDA-Public Use
  Company Number: US-SMITH AND NEPHEW, INC-2017SMT00510

PATIENT
  Age: 72 Year
  Sex: Male
  Weight: 86.17 kg

DRUGS (6)
  1. UNSPECIFIED INSULIN [Concomitant]
     Active Substance: INSULIN NOS
  2. REGRANEX [Suspect]
     Active Substance: BECAPLERMIN
     Dosage: UNK
     Dates: start: 2013
  3. LASIX [Concomitant]
     Active Substance: FUROSEMIDE
  4. UNSPECIFIED BLOOD PRESSURE MEDICATION [Concomitant]
     Active Substance: UNSPECIFIED INGREDIENT
  5. UNSPECIFIED THYROID MEDICATION [Concomitant]
     Active Substance: UNSPECIFIED INGREDIENT
  6. REGRANEX [Suspect]
     Active Substance: BECAPLERMIN
     Indication: SKIN ULCER
     Dosage: UNK, 1X/DAY ON IN THE MORNING AND OFF IN THE EVENING
     Route: 061
     Dates: start: 201705, end: 201707

REACTIONS (3)
  - Wound complication [Recovering/Resolving]
  - Wound infection bacterial [Recovering/Resolving]
  - Wound secretion [Recovering/Resolving]

NARRATIVE: CASE EVENT DATE: 201706
